FAERS Safety Report 12706147 (Version 2)
Quarter: 2016Q3

REPORT INFORMATION
  Report Type: Spontaneous
  Country: US (occurrence: US)
  Receive Date: 20160901
  Receipt Date: 20160901
  Transmission Date: 20161109
  Serious: No
  Sender: FDA-Public Use
  Company Number: US-JAZZ-2016-US-008097

PATIENT
  Age: 71 Year
  Sex: Male

DRUGS (17)
  1. XYREM [Suspect]
     Active Substance: SODIUM OXYBATE
     Indication: NARCOLEPSY
     Dosage: 2.25 G, BID
     Route: 048
     Dates: start: 200801, end: 200802
  2. LEVOXYL [Concomitant]
     Active Substance: LEVOTHYROXINE SODIUM
  3. ASPIRIN. [Concomitant]
     Active Substance: ASPIRIN
  4. FERROUS SULFATE. [Concomitant]
     Active Substance: FERROUS SULFATE
  5. PRILOSEC [Concomitant]
     Active Substance: OMEPRAZOLE MAGNESIUM
  6. PROVIGIL [Concomitant]
     Active Substance: MODAFINIL
  7. XYREM [Suspect]
     Active Substance: SODIUM OXYBATE
     Dosage: 4.5 G, BID
     Route: 048
     Dates: start: 201511
  8. ATENOLOL. [Concomitant]
     Active Substance: ATENOLOL
  9. XYREM [Suspect]
     Active Substance: SODIUM OXYBATE
     Indication: CATAPLEXY
     Dosage: DOSE ADJUSTMENTS
     Route: 048
  10. NUVIGIL [Concomitant]
     Active Substance: ARMODAFINIL
  11. PROZAC [Concomitant]
     Active Substance: FLUOXETINE HYDROCHLORIDE
  12. VITAMIN C TR [Concomitant]
  13. VENLAFAXINE HCL [Concomitant]
     Active Substance: VENLAFAXINE HYDROCHLORIDE
  14. FISH OIL EC [Concomitant]
  15. LIPITOR [Concomitant]
     Active Substance: ATORVASTATIN CALCIUM
  16. MULTIVITAMIN [Concomitant]
     Active Substance: VITAMINS
  17. SIMVASTATIN. [Concomitant]
     Active Substance: SIMVASTATIN

REACTIONS (3)
  - Infection [Unknown]
  - Drug hypersensitivity [Unknown]
  - Musculoskeletal discomfort [Unknown]

NARRATIVE: CASE EVENT DATE: 201603
